FAERS Safety Report 21056689 (Version 1)
Quarter: 2022Q3

REPORT INFORMATION
  Report Type: Spontaneous
  Country: JP (occurrence: JP)
  Receive Date: 20220708
  Receipt Date: 20220708
  Transmission Date: 20221027
  Serious: Yes (Other)
  Sender: FDA-Public Use
  Company Number: JP-BAXTER-2022BAX011759

PATIENT
  Age: 8 Decade

DRUGS (10)
  1. SUPRANE [Suspect]
     Active Substance: DESFLURANE
     Indication: Maintenance of anaesthesia
     Dosage: 4.5-6%
     Route: 065
  2. PROPOFOL [Concomitant]
     Active Substance: PROPOFOL
     Route: 065
  3. REMIFENTANIL [Concomitant]
     Active Substance: REMIFENTANIL
     Route: 065
  4. ROCURONIUM [Concomitant]
     Active Substance: ROCURONIUM BROMIDE
     Route: 065
  5. NICORANDIL [Concomitant]
     Active Substance: NICORANDIL
     Route: 065
  6. LEVOBUPIVACAINE [Concomitant]
     Active Substance: LEVOBUPIVACAINE
     Route: 065
  7. ACETAMINOPHEN [Concomitant]
     Active Substance: ACETAMINOPHEN
     Route: 065
  8. LIDOCAINE [Concomitant]
     Active Substance: LIDOCAINE
     Route: 065
  9. EPHEDRINE HYDROCHLORIDE [Concomitant]
     Active Substance: EPHEDRINE HYDROCHLORIDE
     Route: 065
  10. SUGAMMADEX [Concomitant]
     Active Substance: SUGAMMADEX
     Route: 065

REACTIONS (1)
  - Postoperative delirium [Recovering/Resolving]
